FAERS Safety Report 12660513 (Version 1)
Quarter: 2016Q3

REPORT INFORMATION
  Report Type: Spontaneous
  Country: FI (occurrence: FI)
  Receive Date: 20160817
  Receipt Date: 20160817
  Transmission Date: 20161109
  Serious: Yes (Hospitalization)
  Sender: FDA-Public Use
  Company Number: FI-GUERBET LLC-1056433

PATIENT
  Age: 59 Year
  Sex: Female

DRUGS (1)
  1. OPTIRAY [Suspect]
     Active Substance: IOVERSOL
     Indication: COMPUTERISED TOMOGRAM ABDOMEN
     Route: 042
     Dates: start: 20160604, end: 20160604

REACTIONS (3)
  - Malaise [Unknown]
  - Dizziness [Unknown]
  - Erythema [Unknown]

NARRATIVE: CASE EVENT DATE: 20160604
